FAERS Safety Report 8662474 (Version 2)
Quarter: 2012Q4

REPORT INFORMATION
  Report Type: 
  Country: US (occurrence: US)
  Receive Date: 20120712
  Receipt Date: 20120913
  Transmission Date: 20130627
  Serious: No
  Sender: FDA-Public Use
  Company Number: US-PFIZER INC-2012165814

PATIENT
  Age: 63 Year
  Sex: Female

DRUGS (17)
  1. CHANTIX [Suspect]
     Indication: SMOKING CESSATION THERAPY
     Dosage: UNK
     Route: 048
  2. CHANTIX [Suspect]
     Dosage: 1 mg, 2x/day
     Route: 048
  3. METOPROLOL [Concomitant]
     Indication: HYPERTENSION
     Dosage: one and half tablet daily
  4. HYDROCODONE [Concomitant]
     Indication: BACK PAIN
     Dosage: 7.5/500mg, daily
  5. ADVAIR DISKUS [Concomitant]
     Indication: DYSPNOEA
     Dosage: 250-50 mcg/dose AEPB inhale 1 puff twice daily
     Dates: start: 20120426
  6. ADVAIR DISKUS [Concomitant]
     Indication: EMPHYSEMA
  7. ALPRAZOLAM [Concomitant]
     Indication: NERVOUSNESS
     Dosage: 0.5 mg, 2x/day (took 1 tablet twice daily as needed)
     Route: 048
  8. ALPRAZOLAM [Concomitant]
     Indication: ANXIETY
  9. CARISOPRODOL [Concomitant]
     Dosage: 350 mg, 3x/day (took 1 tablet 3 times daily as needed)
     Route: 048
  10. HYDROCHLOROTHIAZIDE [Concomitant]
     Indication: BLOOD PRESSURE
     Dosage: 25 mg, 1x/day (took 1 tablet every morning)
     Route: 048
     Dates: start: 20070504
  11. HYDROCHLOROTHIAZIDE [Concomitant]
     Indication: SWELLING
  12. HYDROCODONE-ACETAMINOPHEN [Concomitant]
     Indication: PAIN
     Dosage: 7.5-500 mg oral tablet took 1 tablet 3 times daily as needed
     Route: 048
     Dates: start: 20120629
  13. MAGNESIUM [Concomitant]
     Dosage: 400 mg, UNK
     Route: 048
     Dates: start: 20120426
  14. METOPROLOL TARTRATE [Concomitant]
     Indication: BLOOD PRESSURE
     Dosage: took 1 tablet each morning and half tab at bedtime
     Route: 048
     Dates: start: 20120426
  15. OMEPRAZOLE [Concomitant]
     Indication: GASTROOESOPHAGEAL REFLUX DISEASE
     Dosage: 20 mg, 1x/day (oral capsule delayed release take 1 capsule every morning)
     Route: 048
     Dates: start: 20120426
  16. OMEPRAZOLE [Concomitant]
     Indication: DYSPEPSIA
  17. TRAMADOL HCL [Concomitant]
     Indication: PAIN
     Dosage: 50 mg, 4x/day (take 1 tablet 4 times daily as needed)
     Route: 048
     Dates: start: 20110603

REACTIONS (6)
  - Emotional disorder [Unknown]
  - Abnormal dreams [Unknown]
  - Irritability [Unknown]
  - Dysgeusia [Unknown]
  - Parosmia [Unknown]
  - Stress [Unknown]
